FAERS Safety Report 8911744 (Version 2)
Quarter: 2013Q1

REPORT INFORMATION
  Report Type: Spontaneous
  Country: FR (occurrence: FR)
  Receive Date: 20121116
  Receipt Date: 20130107
  Transmission Date: 20140127
  Serious: Yes (Hospitalization, Other)
  Sender: FDA-Public Use
  Company Number: FR-PFIZER INC-2012285986

PATIENT
  Age: 16 Month
  Sex: Male
  Weight: 10.6 kg

DRUGS (1)
  1. ADVIL ENFANTS ET NOURRISSONS [Suspect]
     Indication: PYREXIA
     Dosage: 1 DF, 3X/DAY
     Dates: start: 20121005, end: 20121005

REACTIONS (3)
  - Lip oedema [Unknown]
  - Rash [Unknown]
  - Thrombocytopenic purpura [Recovered/Resolved]
